FAERS Safety Report 4707617-5 (Version None)
Quarter: 2005Q3

REPORT INFORMATION
  Report Type: 
  Country: None (occurrence: None)
  Receive Date: 20050705
  Receipt Date: 20050622
  Transmission Date: 20060218
  Serious: No
  Sender: FDA-Public Use
  Company Number: A044-002-005654

PATIENT
  Age: 79 Year
  Sex: Male

DRUGS (1)
  1. ARICEPT [Suspect]
     Dosage: SEE IMAGE
     Route: 048

REACTIONS (4)
  - AGGRESSION [None]
  - AGITATION [None]
  - DEPRESSION [None]
  - SUICIDAL IDEATION [None]
